FAERS Safety Report 10305145 (Version 1)
Quarter: 2014Q3

REPORT INFORMATION
  Report Type: Spontaneous
  Country: US (occurrence: None)
  Receive Date: 20140710
  Receipt Date: 20140710
  Transmission Date: 20150326
  Serious: Yes (Hospitalization)
  Sender: FDA-Public Use
  Company Number: 2014070017

PATIENT
  Age: 81 Year
  Sex: Male

DRUGS (17)
  1. PLAVIX [Concomitant]
     Active Substance: CLOPIDOGREL BISULFATE
  2. ASTUDAL (AMLODIPINO BESILATO) [Concomitant]
  3. EUTIROX (LEVOTIROXINA SODICA) [Concomitant]
  4. TRAJENTA (LINAGLIPTINA) [Concomitant]
  5. NOVONORM (REPAGLINIDA) [Concomitant]
  6. CARDURAN NEO (DOXAZOSINA MESILATO) [Concomitant]
  7. PANTOPRAZOL (PANTOPRAZOL) [Concomitant]
  8. SINTROM (ACENOCUMAROL) [Concomitant]
  9. SERETIDE (FLUTICASONA PROPIONATO, SALMETEROL) [Concomitant]
  10. DILUTOL (TORASEMIDE) [Suspect]
     Active Substance: TORSEMIDE
     Indication: CARDIAC FAILURE CONGESTIVE
     Route: 048
     Dates: start: 201307, end: 20130911
  11. HIGROTONA [Suspect]
     Active Substance: CHLORTHALIDONE
     Indication: CARDIAC FAILURE CONGESTIVE
     Route: 048
     Dates: start: 201307, end: 20130911
  12. CRESTOR (ROSUVASTATINA CALCICA) [Concomitant]
  13. BISOPROLOL (BISOPROLOL) [Concomitant]
     Active Substance: BISOPROLOL
  14. NITROPLAST  (NITROGLICERINA) [Concomitant]
  15. ZYLORIC (ALLOPURINOL) [Concomitant]
     Active Substance: ALLOPURINOL
  16. SPIRIVA [Concomitant]
     Active Substance: TIOTROPIUM BROMIDE MONOHYDRATE
  17. KARVEA [Concomitant]
     Active Substance: IRBESARTAN

REACTIONS (6)
  - Hyponatraemia [None]
  - Left ventricular hypertrophy [None]
  - Drug interaction [None]
  - Ventricular hypokinesia [None]
  - Cardiac murmur [None]
  - Aortic valve incompetence [None]

NARRATIVE: CASE EVENT DATE: 20130911
